FAERS Safety Report 8514136-7 (Version None)
Quarter: 2012Q3

REPORT INFORMATION
  Report Type: 
  Country: None (occurrence: None)
  Receive Date: 20120717
  Receipt Date: 20120709
  Transmission Date: 20120928
  Serious: Yes (Other)
  Sender: FDA-Public Use
  Company Number: CA-JNJFOC-20120704095

PATIENT
  Sex: Female
  Weight: 83.8 kg

DRUGS (4)
  1. METHOTREXATE [Concomitant]
     Route: 065
  2. METHOTREXATE [Concomitant]
     Route: 065
     Dates: start: 20120620
  3. REMICADE [Suspect]
     Indication: CROHN'S DISEASE
     Route: 042
     Dates: start: 20110811
  4. REMICADE [Suspect]
     Route: 042
     Dates: start: 20120620

REACTIONS (1)
  - FISTULA [None]
